FAERS Safety Report 4490093-8 (Version None)
Quarter: 2004Q4

REPORT INFORMATION
  Report Type: 
  Country: None (occurrence: None)
  Receive Date: 20041027
  Receipt Date: 20041015
  Transmission Date: 20050328
  Serious: Yes (Life-Threatening, Other)
  Sender: FDA-Public Use
  Company Number: 2004240083US

PATIENT
  Sex: Female

DRUGS (2)
  1. XANAX [Suspect]
     Dosage: 28 TABLET, ORAL
     Route: 048
  2. ZOLOFT [Concomitant]

REACTIONS (2)
  - INTENTIONAL OVERDOSE [None]
  - SUICIDE ATTEMPT [None]
